FAERS Safety Report 7345680-6 (Version None)
Quarter: 2011Q1

REPORT INFORMATION
  Report Type: 
  Country: None (occurrence: None)
  Receive Date: 20110310
  Receipt Date: 20110307
  Transmission Date: 20110831
  Serious: Yes (Hospitalization)
  Sender: FDA-Public Use
  Company Number: B0704252A

PATIENT
  Sex: Female
  Weight: 34 kg

DRUGS (3)
  1. LAMICTAL [Suspect]
     Indication: MYOCLONIC EPILEPSY
     Dosage: 25MG PER DAY
     Route: 048
     Dates: start: 20110112, end: 20110117
  2. TENORMIN [Concomitant]
     Indication: ENURESIS
     Route: 065
  3. MINIRIN [Concomitant]
     Indication: ENURESIS
     Route: 065

REACTIONS (6)
  - DYSPEPSIA [None]
  - NAUSEA [None]
  - DECREASED APPETITE [None]
  - INCORRECT DOSE ADMINISTERED [None]
  - VOMITING [None]
  - WEIGHT DECREASED [None]
